FAERS Safety Report 6904694-8 (Version None)
Quarter: 2010Q3

REPORT INFORMATION
  Report Type: 
  Country: None (occurrence: None)
  Receive Date: 20100804
  Receipt Date: 20090704
  Transmission Date: 20110219
  Serious: No
  Sender: FDA-Public Use
  Company Number: US-PFIZER INC-2009187042

PATIENT
  Sex: Male
  Weight: 78 kg

DRUGS (15)
  1. LYRICA [Suspect]
     Indication: NEURALGIA
     Dosage: 75 MG, 2X/DAY
     Dates: start: 20090101
  2. CELEBREX [Suspect]
     Dosage: UNK
  3. NEURONTIN [Concomitant]
     Dosage: UNK
  4. PERCOCET [Concomitant]
     Indication: PAIN
     Dosage: [OXYCODONE HYDROCHLORIDE 750MG]/[PARACETAMOL 325MG]
  5. SOMA [Concomitant]
     Dosage: 359 MG, 2X/DAY
  6. HYDRALAZINE [Concomitant]
     Dosage: 10 MG, 2X/DAY
  7. IRON [Concomitant]
     Dosage: UNK
  8. POTASSIUM [Concomitant]
     Dosage: UNK
  9. CYMBALTA [Concomitant]
     Dosage: 20 MG, 2X/DAY
  10. TAMSULOSIN [Concomitant]
     Dosage: 0.4 MG/DAY
  11. REMERON [Concomitant]
     Dosage: 45 MG/DAY
  12. PREDNISONE [Concomitant]
     Dosage: 20 MG/DAY
  13. XANAX [Concomitant]
     Dosage: 1 MG, 2X/DAY
  14. SEROQUEL [Concomitant]
     Dosage: 50 MG, 2X/DAY
  15. ADVAIR DISKUS 100/50 [Concomitant]
     Dosage: 250 MG, 2X/DAY

REACTIONS (2)
  - INFECTION [None]
  - TINNITUS [None]
